FAERS Safety Report 5517480-0 (Version None)
Quarter: 2007Q4

REPORT INFORMATION
  Report Type: 
  Country: None (occurrence: None)
  Receive Date: 20071114
  Receipt Date: 20071106
  Transmission Date: 20080405
  Serious: Yes (Other)
  Sender: FDA-Public Use
  Company Number: US-PFIZER INC-2007093960

PATIENT
  Sex: Female

DRUGS (1)
  1. GEODON [Suspect]

REACTIONS (1)
  - TARDIVE DYSKINESIA [None]
